FAERS Safety Report 4295298-7 (Version None)
Quarter: 2004Q1

REPORT INFORMATION
  Report Type: 
  Country: None (occurrence: None)
  Receive Date: 20040216
  Receipt Date: 20030522
  Transmission Date: 20041129
  Serious: No
  Sender: FDA-Public Use
  Company Number: US-GLAXOSMITHKLINE-A0409309A

PATIENT
  Age: 43 Year
  Sex: Female

DRUGS (5)
  1. LAMICTAL [Suspect]
     Indication: BIPOLAR DISORDER
     Dosage: 25MG TWICE PER DAY
     Route: 048
     Dates: start: 20030101, end: 20030519
  2. WELLBUTRIN [Concomitant]
     Route: 048
  3. LITHIUM CARBONATE [Concomitant]
  4. SEROQUEL [Concomitant]
  5. ZOLOFT [Concomitant]

REACTIONS (1)
  - RASH [None]
